FAERS Safety Report 16165794 (Version 2)
Quarter: 2019Q2

REPORT INFORMATION
  Report Type: Report from Study
  Country: None (occurrence: US)
  Receive Date: 20190406
  Receipt Date: 20190515
  Transmission Date: 20190711
  Serious: Yes (Hospitalization)
  Sender: FDA-Public Use
  Company Number: US-ABBVIE-19K-163-2731170-00

PATIENT
  Age: 37 Year
  Sex: Male
  Weight: 93.07 kg

DRUGS (3)
  1. HUMIRA [Suspect]
     Active Substance: ADALIMUMAB
     Indication: RHEUMATOID ARTHRITIS
     Route: 058
     Dates: start: 201902
  2. AMOXICILLIN. [Suspect]
     Active Substance: AMOXICILLIN
     Indication: TOOTH EXTRACTION
     Route: 065
  3. OXYCODONE AND ACETAMINOPHEN [Concomitant]
     Active Substance: ACETAMINOPHEN\OXYCODONE HYDROCHLORIDE
     Indication: PAIN

REACTIONS (6)
  - Feeling abnormal [Unknown]
  - Tooth extraction [Unknown]
  - Dyspnoea [Unknown]
  - Abdominal discomfort [Unknown]
  - Chest pain [Recovered/Resolved]
  - Electrocardiogram abnormal [Unknown]

NARRATIVE: CASE EVENT DATE: 2019
